FAERS Safety Report 4783188-2 (Version None)
Quarter: 2005Q3

REPORT INFORMATION
  Report Type: 
  Country: None (occurrence: None)
  Receive Date: 20050929
  Receipt Date: 20050822
  Transmission Date: 20060218
  Serious: Yes (Death, Hospitalization, Disabling)
  Sender: FDA-Public Use
  Company Number: IT-GLAXOSMITHKLINE-B0391300A

PATIENT
  Age: 57 Year
  Sex: Male

DRUGS (1)
  1. LAMIVUDINE [Suspect]
     Indication: HEPATITIS B
     Dosage: 300MG PER DAY
     Route: 065

REACTIONS (13)
  - ABASIA [None]
  - AREFLEXIA [None]
  - ASTHENIA [None]
  - CARDIAC ARREST [None]
  - CONDITION AGGRAVATED [None]
  - DYSPHONIA [None]
  - GAIT DISTURBANCE [None]
  - MITOCHONDRIAL CYTOPATHY [None]
  - NEUROPATHY PERIPHERAL [None]
  - PERONEAL NERVE PALSY [None]
  - QUADRIPARESIS [None]
  - RESPIRATORY ARREST [None]
  - RESPIRATORY DISORDER [None]
